FAERS Safety Report 22341224 (Version 5)
Quarter: 2024Q2

REPORT INFORMATION
  Report Type: Report from Study
  Country: US (occurrence: US)
  Receive Date: 20230518
  Receipt Date: 20240520
  Transmission Date: 20240715
  Serious: No
  Sender: FDA-Public Use
  Company Number: US-002147023-NVSC2023US109233

PATIENT

DRUGS (1)
  1. KESIMPTA [Suspect]
     Active Substance: OFATUMUMAB
     Indication: Relapsing multiple sclerosis
     Dosage: UNK UNK, QMO (START DATE: 05 MAY (YEAR UNSPECIFIED)
     Route: 058

REACTIONS (6)
  - Pain [Recovered/Resolved]
  - Upper respiratory tract infection [Unknown]
  - Nasopharyngitis [Unknown]
  - Headache [Recovered/Resolved]
  - Illness [Unknown]
  - Product storage error [Unknown]
